FAERS Safety Report 7832302-0 (Version None)
Quarter: 2011Q4

REPORT INFORMATION
  Report Type: 
  Country: None (occurrence: None)
  Receive Date: 20111022
  Receipt Date: 20111005
  Transmission Date: 20120403
  Serious: Yes (Hospitalization)
  Sender: FDA-Public Use
  Company Number: US-BAYER-2011-055322

PATIENT
  Age: 20 Year
  Sex: Female
  Weight: 79 kg

DRUGS (3)
  1. ZOLOFT [Concomitant]
     Dosage: 100 MG, QD
     Route: 048
  2. YAZ [Suspect]
     Indication: ACNE
     Dosage: UNK
     Dates: start: 20080101, end: 20090101
  3. YAZ [Suspect]
     Indication: CONTRACEPTION

REACTIONS (3)
  - PULMONARY EMBOLISM [None]
  - INJURY [None]
  - PAIN [None]
